FAERS Safety Report 8920737 (Version 1)
Quarter: 2012Q4

REPORT INFORMATION
  Report Type: 
  Country: US (occurrence: US)
  Receive Date: 20121122
  Receipt Date: 20121122
  Transmission Date: 20130627
  Serious: Yes (Hospitalization, Other)
  Sender: FDA-Public Use
  Company Number: PHHY2012US105533

PATIENT
  Age: 75 Year
  Sex: Female

DRUGS (3)
  1. BUFFERIN [Suspect]
     Indication: PAIN
     Route: 048
  2. EXCEDRIN TENSION HEADACHE [Suspect]
     Indication: PAIN
     Dosage: 2 DF, QD
     Route: 048
  3. EXCEDRIN UNKNOWN [Suspect]
     Route: 048

REACTIONS (6)
  - Hypoaesthesia [Recovered/Resolved]
  - Fibromyalgia [Not Recovered/Not Resolved]
  - Thyroid disorder [Not Recovered/Not Resolved]
  - Oropharyngeal pain [Not Recovered/Not Resolved]
  - Cough [Not Recovered/Not Resolved]
  - Ulcer [Not Recovered/Not Resolved]
